FAERS Safety Report 21342517 (Version 2)
Quarter: 2022Q3

REPORT INFORMATION
  Report Type: Report from Study
  Country: US (occurrence: US)
  Receive Date: 20220916
  Receipt Date: 20220926
  Transmission Date: 20221027
  Serious: Yes (Hospitalization)
  Sender: FDA-Public Use
  Company Number: US-SERVIER-S22009441

PATIENT

DRUGS (1)
  1. TIBSOVO [Suspect]
     Active Substance: IVOSIDENIB
     Indication: Hepatobiliary cancer
     Dosage: 250 MG, DAILY
     Route: 048
     Dates: start: 20220825, end: 202208

REACTIONS (3)
  - Asthenia [Recovered/Resolved]
  - Pyrexia [Recovered/Resolved]
  - Product use issue [Recovered/Resolved]

NARRATIVE: CASE EVENT DATE: 20220825
